FAERS Safety Report 20138190 (Version 1)
Quarter: 2021Q4

REPORT INFORMATION
  Report Type: Spontaneous
  Country: US (occurrence: US)
  Receive Date: 20211202
  Receipt Date: 20211202
  Transmission Date: 20220304
  Serious: No
  Sender: FDA-Public Use
  Company Number: US-BoehringerIngelheim-2021-BI-141490

PATIENT

DRUGS (2)
  1. MOBIC [Suspect]
     Active Substance: MELOXICAM
     Indication: Inflammatory pain
     Route: 065
  2. MOBIC [Suspect]
     Active Substance: MELOXICAM
     Indication: Arthritis

REACTIONS (1)
  - Drug ineffective [Unknown]
